FAERS Safety Report 8845787 (Version 1)
Quarter: 2012Q4

REPORT INFORMATION
  Report Type: 
  Country: US (occurrence: US)
  Receive Date: 20121017
  Receipt Date: 20121017
  Transmission Date: 20130627
  Serious: Yes (Hospitalization, Other)
  Sender: FDA-Public Use
  Company Number: US-PFIZER INC-2012254230

PATIENT
  Age: 84 Year
  Sex: Male
  Weight: 90.7 kg

DRUGS (1)
  1. REVATIO [Suspect]
     Indication: DYSPNOEA
     Dosage: 20 mg, 3x/day
     Dates: start: 201206

REACTIONS (5)
  - Loss of consciousness [Unknown]
  - Blood pressure decreased [Unknown]
  - Fall [Unknown]
  - Malaise [Unknown]
  - Gait disturbance [Unknown]
